FAERS Safety Report 14745246 (Version 1)
Quarter: 2018Q2

REPORT INFORMATION
  Report Type: Spontaneous
  Country: FR (occurrence: FR)
  Receive Date: 20180411
  Receipt Date: 20180411
  Transmission Date: 20180711
  Serious: Yes (Other)
  Sender: FDA-Public Use
  Company Number: FR-MERCK KGAA-2045535

PATIENT
  Age: 47 Year
  Sex: Female

DRUGS (2)
  1. NOVOTHYROX [Suspect]
     Active Substance: LEVOTHYROXINE SODIUM
     Indication: PRODUCT USED FOR UNKNOWN INDICATION
  2. PLAVIX [Concomitant]
     Active Substance: CLOPIDOGREL BISULFATE

REACTIONS (34)
  - Social avoidant behaviour [None]
  - Blood cholesterol increased [None]
  - Fatigue [None]
  - Disturbance in attention [None]
  - Myalgia [Recovering/Resolving]
  - Mood swings [None]
  - Alopecia [None]
  - Emotional distress [None]
  - Hair texture abnormal [None]
  - Major depression [Not Recovered/Not Resolved]
  - Hormone level abnormal [None]
  - Pain in extremity [Recovering/Resolving]
  - Limb discomfort [None]
  - Chest pain [None]
  - Swelling face [None]
  - Psychiatric symptom [None]
  - Gait disturbance [None]
  - Personal relationship issue [None]
  - Disorientation [None]
  - Nervousness [None]
  - Weight increased [None]
  - Blood thyroid stimulating hormone decreased [Not Recovered/Not Resolved]
  - Thyroxine increased [None]
  - Anxiety [None]
  - Tendon pain [Recovering/Resolving]
  - Abdominal pain upper [None]
  - Depressed mood [None]
  - Tachycardia [None]
  - Feeling abnormal [None]
  - Crying [None]
  - Dizziness [None]
  - Communication disorder [None]
  - Blood triglycerides increased [None]
  - Device occlusion [None]

NARRATIVE: CASE EVENT DATE: 20170502
